FAERS Safety Report 10457145 (Version 1)
Quarter: 2014Q3

REPORT INFORMATION
  Report Type: Spontaneous
  Country: PH (occurrence: PH)
  Receive Date: 20140916
  Receipt Date: 20140916
  Transmission Date: 20150326
  Serious: Yes (Death, Hospitalization)
  Sender: FDA-Public Use
  Company Number: PH-SA-2014SA124764

PATIENT
  Age: 63 Year
  Sex: Female

DRUGS (1)
  1. ENOXAPARIN SODIUM. [Suspect]
     Active Substance: ENOXAPARIN SODIUM
     Indication: CEREBRAL VENOUS THROMBOSIS
     Route: 058

REACTIONS (5)
  - Cerebral haemorrhage [Fatal]
  - Brain oedema [Fatal]
  - Brain injury [Fatal]
  - Brain herniation [Fatal]
  - Necrosis [Fatal]
